FAERS Safety Report 23058272 (Version 1)
Quarter: 2023Q4

REPORT INFORMATION
  Report Type: Report from Study
  Country: US (occurrence: US)
  Receive Date: 20231012
  Receipt Date: 20231012
  Transmission Date: 20240109
  Serious: Yes (Other)
  Sender: FDA-Public Use
  Company Number: US-ABBVIE-4717639

PATIENT
  Sex: Female

DRUGS (1)
  1. RINVOQ [Suspect]
     Active Substance: UPADACITINIB
     Indication: Rheumatoid arthritis
     Dosage: FORM STRENGTH: 15 MILLIGRAM
     Route: 048
     Dates: start: 20220725

REACTIONS (9)
  - Tooth extraction [Unknown]
  - Tooth infection [Unknown]
  - Osteomyelitis [Unknown]
  - Oral infection [Unknown]
  - Pain [Unknown]
  - Tooth infection [Recovered/Resolved]
  - Oral disorder [Unknown]
  - Bone operation [Unknown]
  - Root canal infection [Unknown]

NARRATIVE: CASE EVENT DATE: 20230101
